FAERS Safety Report 8911438 (Version 5)
Quarter: 2014Q4

REPORT INFORMATION
  Report Type: Spontaneous
  Country: BE (occurrence: BE)
  Receive Date: 20121116
  Receipt Date: 20141021
  Transmission Date: 20150529
  Serious: Yes (Hospitalization, Other)
  Sender: FDA-Public Use
  Company Number: BE-MPIJNJ-2012-08127

PATIENT

DRUGS (20)
  1. SPIRONOLACTONE. [Concomitant]
     Active Substance: SPIRONOLACTONE
  2. MOXONIDINE [Concomitant]
     Active Substance: MOXONIDINE
  3. LOSARTAN [Concomitant]
     Active Substance: LOSARTAN
     Indication: HYPERTENSION
     Dosage: UNK
     Route: 048
     Dates: start: 2008
  4. ALLOPURINOL. [Concomitant]
     Active Substance: ALLOPURINOL
     Indication: URTICARIA
     Dosage: UNK
     Route: 048
     Dates: start: 2008
  5. ASAFLOW [Concomitant]
     Active Substance: ASPIRIN
     Dosage: UNK
     Route: 048
     Dates: start: 2008
  6. NOBITEN                            /01339101/ [Concomitant]
     Active Substance: NEBIVOLOL
     Indication: HYPERTENSION
     Dosage: UNK
     Route: 048
     Dates: start: 2008
  7. GLIQUIDONE [Concomitant]
     Active Substance: GLIQUIDONE
  8. ACETYLSALICYLIC ACID [Concomitant]
     Active Substance: ASPIRIN
  9. DEXAMETHASONE. [Suspect]
     Active Substance: DEXAMETHASONE
     Indication: PLASMA CELL MYELOMA
     Dosage: 40 MG, UNK
     Route: 048
     Dates: start: 201208
  10. GLURENORM [Concomitant]
     Indication: TYPE 2 DIABETES MELLITUS
     Dosage: UNK
     Route: 048
     Dates: start: 2008
  11. METHYLPREDNISOLONE. [Concomitant]
     Active Substance: METHYLPREDNISOLONE
     Dosage: 4 MG, PER DAY
     Dates: start: 2008
  12. MYCOPHENOLATE MOFETIL. [Concomitant]
     Active Substance: MYCOPHENOLATE MOFETIL
  13. NEBIVOLOL [Concomitant]
     Active Substance: NEBIVOLOL
  14. VELCADE [Suspect]
     Active Substance: BORTEZOMIB
     Dosage: 1 UNK, UNK
  15. VELCADE [Suspect]
     Active Substance: BORTEZOMIB
     Indication: PLASMA CELL MYELOMA
     Dosage: 1.3 MG/M2, UNK
     Route: 058
     Dates: start: 201208
  16. CELLCEPT [Concomitant]
     Active Substance: MYCOPHENOLATE MOFETIL\MYCOPHENOLATE MOFETIL HYDROCHLORIDE
     Dosage: UNK
     Route: 048
     Dates: start: 2008
  17. TACROLIMUS. [Concomitant]
     Active Substance: TACROLIMUS
  18. ALTIZIDE [Concomitant]
     Active Substance: ALTHIAZIDE
  19. SIMVASTATINE [Concomitant]
     Active Substance: SIMVASTATIN
     Dosage: UNK
     Route: 048
     Dates: start: 2008
  20. ADVAGRAF [Concomitant]
     Active Substance: TACROLIMUS

REACTIONS (2)
  - Inappropriate antidiuretic hormone secretion [Recovered/Resolved]
  - Polyneuropathy [Recovered/Resolved]
